FAERS Safety Report 8971147 (Version 1)
Quarter: 2012Q4

REPORT INFORMATION
  Report Type: 
  Country: US (occurrence: US)
  Receive Date: 20121218
  Receipt Date: 20121218
  Transmission Date: 20130627
  Serious: Yes (Death, Other)
  Sender: FDA-Public Use
  Company Number: PHEH2012US010888

PATIENT
  Age: 43 Year
  Sex: Male

DRUGS (2)
  1. GLEEVEC [Suspect]
     Indication: ACUTE LYMPHOCYTIC LEUKAEMIA
     Dosage: 100 mg, BID
     Route: 048
     Dates: start: 20120706
  2. GLEEVEC [Suspect]
     Dosage: 400 mg, daily
     Route: 048

REACTIONS (2)
  - Death [Fatal]
  - Disease recurrence [Unknown]
